FAERS Safety Report 8726506 (Version 4)
Quarter: 2013Q2

REPORT INFORMATION
  Report Type: Spontaneous
  Country: US (occurrence: US)
  Receive Date: 20120816
  Receipt Date: 20130510
  Transmission Date: 20140414
  Serious: Yes (Hospitalization)
  Sender: FDA-Public Use
  Company Number: US-B.I. PHARMACEUTICALS,INC./RIDGEFIELD-2012-BP-18724BP

PATIENT
  Age: 73 Year
  Sex: Female
  Weight: 55.79 kg

DRUGS (21)
  1. PRADAXA [Suspect]
     Indication: ATRIAL FIBRILLATION
     Dosage: 300 MG
     Route: 048
     Dates: start: 20110701, end: 20110725
  2. HYOSCYAMINE [Concomitant]
  3. ZYRTEC [Concomitant]
  4. NASONEX [Concomitant]
  5. LOSARTAN [Concomitant]
     Dosage: 100 MG
  6. COREG [Concomitant]
     Dosage: 50 MG
  7. LUTEIN [Concomitant]
     Dosage: 6 MG
  8. VITAMIN E [Concomitant]
     Dosage: 800 U
  9. CALCIUM WITH MAGNESIUM [Concomitant]
  10. ASPIRIN [Concomitant]
     Dosage: 81 MG
  11. MOBIC [Concomitant]
  12. FOLIC ACID [Concomitant]
     Dosage: 1 MG
     Route: 048
  13. VITAMIN B12 [Concomitant]
     Dosage: 1000 MCG
  14. AMLODIPINE [Concomitant]
     Dosage: 110 MG
     Route: 048
  15. OMEPRAZOLE [Concomitant]
     Dosage: 20 MG
  16. LIPITOR [Concomitant]
     Dosage: 20 MG
  17. FUROSEMIDE [Concomitant]
     Dosage: 40 MG
  18. POTASSIUM [Concomitant]
     Dosage: 20 MEQ
  19. NITROGLYCERIN [Concomitant]
  20. ROLAIDS [Concomitant]
  21. TESSALON PERLES [Concomitant]

REACTIONS (2)
  - Gastrointestinal haemorrhage [Recovered/Resolved]
  - Rectal haemorrhage [Recovered/Resolved]
